FAERS Safety Report 6978627-2 (Version None)
Quarter: 2010Q3

REPORT INFORMATION
  Report Type: 
  Country: None (occurrence: None)
  Receive Date: 20100913
  Receipt Date: 20100903
  Transmission Date: 20110219
  Serious: Yes (Hospitalization)
  Sender: FDA-Public Use
  Company Number: A0789982A

PATIENT
  Age: 47 Year
  Sex: Male
  Weight: 120.5 kg

DRUGS (7)
  1. AVANDIA [Suspect]
     Dosage: 4MG TWICE PER DAY
     Route: 048
     Dates: start: 20040801, end: 20070301
  2. CLONIDINE [Concomitant]
  3. JANUVIA [Concomitant]
  4. HYDRALAZINE [Concomitant]
  5. OMEPRAZOLE [Concomitant]
  6. COVERA-HS [Concomitant]
  7. VERAPAMIL HCL [Concomitant]

REACTIONS (3)
  - BLINDNESS UNILATERAL [None]
  - CARDIAC FAILURE CONGESTIVE [None]
  - RENAL FAILURE [None]
